FAERS Safety Report 6550253-9 (Version None)
Quarter: 2010Q1

REPORT INFORMATION
  Report Type: 
  Country: None (occurrence: None)
  Receive Date: 20100125
  Receipt Date: 20100115
  Transmission Date: 20100710
  Serious: Yes (Death, Other)
  Sender: FDA-Public Use
  Company Number: US-JNJFOC-20100107840

PATIENT
  Age: 21 Year
  Sex: Male

DRUGS (1)
  1. LOPERAMIDE [Suspect]
     Indication: DRUG USE FOR UNKNOWN INDICATION
     Dosage: 800 TABLETS
     Route: 048

REACTIONS (15)
  - AGITATION [None]
  - ANOXIC ENCEPHALOPATHY [None]
  - APNOEA [None]
  - BLOOD GLUCOSE INCREASED [None]
  - BLOOD PH DECREASED [None]
  - BRONCHOPNEUMONIA [None]
  - CARDIAC ARREST [None]
  - COMPLETED SUICIDE [None]
  - DRUG TOXICITY [None]
  - HYPOTENSION [None]
  - MUSCLE RIGIDITY [None]
  - MYOCLONUS [None]
  - OPISTHOTONUS [None]
  - PNEUMONIA ASPIRATION [None]
  - PULSE ABSENT [None]
